FAERS Safety Report 9621445 (Version 3)
Quarter: 2013Q4

REPORT INFORMATION
  Report Type: Spontaneous
  Country: US (occurrence: US)
  Receive Date: 20131015
  Receipt Date: 20131210
  Transmission Date: 20140711
  Serious: Yes (Other)
  Sender: FDA-Public Use
  Company Number: US-UCBSA-096268

PATIENT
  Age: 65 Year
  Sex: Female
  Weight: 56 kg

DRUGS (23)
  1. CIMZIA [Suspect]
     Indication: RHEUMATOID ARTHRITIS
     Dosage: INDUCTION DOSE; 400 MG EACH MONTH
     Route: 058
     Dates: start: 2013
  2. FOLIC ACID [Concomitant]
     Indication: NUTRITIONAL SUPPLEMENTATION
     Route: 048
  3. METHOTREXATE [Concomitant]
     Indication: RHEUMATOID ARTHRITIS
     Dosage: STRENGTH: 2.5 MG (8 TABLETS AT A TIME ONCE EVERY 2 WEEKS)
     Route: 048
  4. METHOTREXATE [Concomitant]
     Indication: RHEUMATOID ARTHRITIS
     Dosage: DOSE: 6 TABLETS ONE TIME EVERY ONE WEEK
     Route: 048
  5. CELEBREX [Concomitant]
     Indication: PAIN
     Route: 048
  6. CELEBREX [Concomitant]
     Indication: PAIN
     Route: 048
  7. SYNTHROID [Concomitant]
     Indication: THYROID DISORDER
     Dosage: DOSE PER INTAKE: HALF OF A 0.125 MG TAB
     Route: 048
  8. BYSTOLIC [Concomitant]
     Indication: HYPERTENSION
     Dosage: PILL
     Route: 048
  9. LISINOPRIL [Concomitant]
     Indication: HYPERTENSION
     Dosage: PILL
     Route: 048
  10. ONGLYZA [Concomitant]
     Indication: HYPERGLYCAEMIA
     Dosage: PILL
     Route: 048
  11. BABY ASA [Concomitant]
     Dosage: PILL
     Route: 048
     Dates: start: 2007
  12. VITAMIN D [Concomitant]
     Dosage: PILL
     Route: 048
  13. PAMELOR [Concomitant]
     Indication: SLEEP DISORDER
     Route: 048
  14. PAMELOR [Concomitant]
     Indication: FIBROMYALGIA
     Route: 048
  15. TRANXENE [Concomitant]
     Indication: ANXIETY
     Route: 048
  16. TRANXENE [Concomitant]
     Indication: SLEEP DISORDER
     Route: 048
  17. TRANXENE [Concomitant]
     Indication: ANXIETY
     Dosage: PILL
     Route: 048
  18. TRANXENE [Concomitant]
     Indication: SLEEP DISORDER
     Dosage: PILL
     Route: 048
  19. PREMARIN [Concomitant]
     Indication: MENOPAUSAL SYMPTOMS
     Route: 048
  20. CRESTOR [Concomitant]
     Indication: BLOOD CHOLESTEROL INCREASED
     Dosage: FREQUENCY: ONE AT HS (NIGHT); PILL
     Route: 048
  21. LOVAZA [Concomitant]
     Indication: BLOOD TRIGLYCERIDES INCREASED
     Dosage: 1 G
  22. MONISTAT [Concomitant]
  23. OMEPRAZOLE [Concomitant]
     Indication: DYSPEPSIA
     Route: 048

REACTIONS (4)
  - Psoriasis [Recovered/Resolved]
  - Vulvovaginal mycotic infection [Recovered/Resolved]
  - Actinic keratosis [Recovered/Resolved]
  - Night sweats [Recovering/Resolving]
